FAERS Safety Report 5286437-X (Version None)
Quarter: 2007Q2

REPORT INFORMATION
  Report Type: 
  Country: None (occurrence: None)
  Receive Date: 20070404
  Receipt Date: 20070330
  Transmission Date: 20071010
  Serious: No
  Sender: FDA-Public Use
  Company Number: 2006UW11214

PATIENT
  Age: 38 Year
  Sex: Male
  Weight: 102.7 kg

DRUGS (5)
  1. SEROQUEL [Suspect]
     Indication: DEPRESSION
     Dosage: 100MG-300MG
     Route: 048
     Dates: start: 20040101
  2. SEROQUEL [Suspect]
     Indication: MOOD SWINGS
     Dosage: 100MG-300MG
     Route: 048
     Dates: start: 20040101
  3. HALDOL [Concomitant]
  4. ZYPREXA [Concomitant]
     Dates: start: 20040101, end: 20050101
  5. PAXIL [Concomitant]

REACTIONS (2)
  - HYPERGLYCAEMIA [None]
  - HYPOGLYCAEMIA [None]
